FAERS Safety Report 6443057-9 (Version None)
Quarter: 2009Q4

REPORT INFORMATION
  Report Type: 
  Country: None (occurrence: None)
  Receive Date: 20091117
  Receipt Date: 20091109
  Transmission Date: 20100525
  Serious: Yes (Other)
  Sender: FDA-Public Use
  Company Number: FR-ASTRAZENECA-2009SE25279

PATIENT
  Age: 79 Year
  Sex: Male

DRUGS (7)
  1. MOPRAL [Suspect]
     Indication: ABDOMINAL PAIN UPPER
     Route: 048
     Dates: start: 20090301, end: 20090301
  2. MODOPAR [Concomitant]
     Route: 048
  3. TRIATEC [Concomitant]
     Route: 048
  4. CARDENSIEL [Concomitant]
     Route: 048
  5. KARDEGIC [Concomitant]
     Route: 048
  6. SERESTA [Concomitant]
     Route: 048
  7. PAROXETINE HCL [Concomitant]
     Route: 048

REACTIONS (2)
  - PERSONALITY DISORDER [None]
  - SUICIDAL IDEATION [None]
